FAERS Safety Report 24769793 (Version 1)
Quarter: 2024Q4

REPORT INFORMATION
  Report Type: Spontaneous
  Country: US (occurrence: US)
  Receive Date: 20241224
  Receipt Date: 20241224
  Transmission Date: 20250115
  Serious: No
  Sender: BRISTOL-MYERS SQUIBB COMPANY
  Company Number: US-BRISTOL-MYERS SQUIBB COMPANY-2024-198470

PATIENT
  Age: 58 Year
  Sex: Female

DRUGS (2)
  1. OPDIVO [Suspect]
     Active Substance: NIVOLUMAB
     Indication: Head and neck cancer
  2. YERVOY [Suspect]
     Active Substance: IPILIMUMAB
     Indication: Head and neck cancer

REACTIONS (2)
  - Rash pruritic [Recovered/Resolved]
  - Off label use [Unknown]
